FAERS Safety Report 10098909 (Version 1)
Quarter: 2014Q2

REPORT INFORMATION
  Report Type: Report from Study
  Country: US (occurrence: US)
  Receive Date: 20140423
  Receipt Date: 20140423
  Transmission Date: 20141212
  Serious: Yes (Other)
  Sender: FDA-Public Use
  Company Number: US-B.I. PHARMACEUTICALS,INC./RIDGEFIELD-2014-BI-18105GD

PATIENT
  Sex: 0

DRUGS (2)
  1. PRADAXA [Suspect]
     Indication: ANTICOAGULANT THERAPY
     Route: 048
  2. HEPARIN [Suspect]
     Indication: ANTICOAGULANT THERAPY
     Dosage: INFUSION WITHOUT BOLUS AT THE RATE LEADING TO MAINTENANCE OF ACTIVATED CLOTTING TIME }350 SEC
     Route: 042

REACTIONS (1)
  - Vascular pseudoaneurysm [Unknown]
